FAERS Safety Report 6407937-2 (Version None)
Quarter: 2009Q4

REPORT INFORMATION
  Report Type: 
  Country: None (occurrence: None)
  Receive Date: 20091008
  Receipt Date: 20090916
  Transmission Date: 20100525
  Serious: Yes (Other)
  Sender: FDA-Public Use
  Company Number: CHNY2009JP03171

PATIENT
  Age: 67 Year
  Sex: Male

DRUGS (1)
  1. FERROUS SULFATE TAB [Suspect]
     Indication: MINERAL SUPPLEMENTATION
     Dosage: 200 MG, QD, ORAL
     Route: 048
     Dates: start: 20090805, end: 20090810

REACTIONS (2)
  - BLOOD DISORDER [None]
  - PROSTATECTOMY [None]
